FAERS Safety Report 5140438-0 (Version None)
Quarter: 2006Q4

REPORT INFORMATION
  Report Type: 
  Country: None (occurrence: None)
  Receive Date: 20061024
  Receipt Date: 20061010
  Transmission Date: 20070319
  Serious: Yes (Other)
  Sender: FDA-Public Use
  Company Number: DE200610002428

PATIENT
  Age: 39 Year
  Sex: Male

DRUGS (3)
  1. FORTEO [Suspect]
     Indication: OSTEOPOROSIS
     Dosage: 20 UG, DAILY (1/D), SUBCUTANEOUS
     Route: 058
     Dates: start: 20060704, end: 20061001
  2. FORTEO [Concomitant]
  3. CORITSONE (CORTISONE) [Concomitant]

REACTIONS (2)
  - ALLERGIC BRONCHITIS [None]
  - CONDITION AGGRAVATED [None]
